FAERS Safety Report 19123937 (Version 1)
Quarter: 2021Q2

REPORT INFORMATION
  Report Type: Spontaneous
  Country: US (occurrence: US)
  Receive Date: 20210413
  Receipt Date: 20210413
  Transmission Date: 20210717
  Serious: No
  Sender: FDA-Public Use
  Company Number: US-SA-2021SA113976

PATIENT
  Sex: Male

DRUGS (1)
  1. CHILDREN^S ALLEGRA ALLERGY [Suspect]
     Active Substance: FEXOFENADINE HYDROCHLORIDE
     Indication: MULTIPLE ALLERGIES
     Dosage: UNK
     Dates: start: 20210326, end: 20210326

REACTIONS (4)
  - Sleep terror [Unknown]
  - Crying [Unknown]
  - Screaming [Unknown]
  - Middle insomnia [Unknown]

NARRATIVE: CASE EVENT DATE: 20210326
